FAERS Safety Report 19244334 (Version 1)
Quarter: 2021Q2

REPORT INFORMATION
  Report Type: Spontaneous
  Country: US (occurrence: US)
  Receive Date: 20210512
  Receipt Date: 20210512
  Transmission Date: 20210717
  Serious: Yes (Hospitalization)
  Sender: FDA-Public Use
  Company Number: US-ABBVIE-21K-163-3897267-00

PATIENT
  Sex: Male

DRUGS (1)
  1. SKYRIZI [Suspect]
     Active Substance: RISANKIZUMAB-RZAA
     Indication: PRODUCT USED FOR UNKNOWN INDICATION
     Route: 058
     Dates: start: 202011

REACTIONS (5)
  - Peripheral swelling [Unknown]
  - Swollen tongue [Unknown]
  - Angioedema [Unknown]
  - Urticaria [Unknown]
  - Swelling [Unknown]

NARRATIVE: CASE EVENT DATE: 202011
